FAERS Safety Report 8967548 (Version 1)
Quarter: 2012Q4

REPORT INFORMATION
  Report Type: 
  Country: BR (occurrence: BR)
  Receive Date: 20121214
  Receipt Date: 20121214
  Transmission Date: 20130627
  Serious: Yes (Other)
  Sender: FDA-Public Use
  Company Number: BR-ABBOTT-12P-020-1020040-00

PATIENT
  Sex: Female
  Weight: 67 kg

DRUGS (2)
  1. MEBEVERINE HYDROCHLORIDE [Suspect]
     Indication: ABDOMINAL PAIN
     Route: 048
     Dates: start: 2005
  2. MEBEVERINE HYDROCHLORIDE [Suspect]
     Indication: DIVERTICULITIS

REACTIONS (10)
  - Retinal detachment [Recovered/Resolved]
  - Abdominal pain [Recovering/Resolving]
  - Contusion [Recovered/Resolved]
  - Frequent bowel movements [Unknown]
  - Dizziness [Recovered/Resolved]
  - Gastrointestinal pain [Unknown]
  - Abdominal distension [Unknown]
  - Urinary tract infection [Unknown]
  - Limb injury [Unknown]
  - Onychomadesis [Unknown]
